FAERS Safety Report 4462463-5 (Version None)
Quarter: 2004Q3

REPORT INFORMATION
  Report Type: 
  Country: None (occurrence: None)
  Receive Date: 20040924
  Receipt Date: 20040909
  Transmission Date: 20050211
  Serious: Yes (Hospitalization)
  Sender: FDA-Public Use
  Company Number: 204487

PATIENT
  Age: 64 Year
  Sex: Female
  Weight: 58.9676 kg

DRUGS (2)
  1. AVONEX [Suspect]
     Indication: MULTIPLE SCLEROSIS
     Dates: end: 20040601
  2. MS MEDICATION (NOS) [Concomitant]

REACTIONS (8)
  - ANXIETY [None]
  - APNOEA [None]
  - ASTHENIA [None]
  - DIFFICULTY IN WALKING [None]
  - GALLBLADDER CANCER [None]
  - GASTRIC CANCER [None]
  - GASTROINTESTINAL CARCINOMA [None]
  - PULMONARY OEDEMA [None]
